FAERS Safety Report 12693571 (Version 2)
Quarter: 2016Q4

REPORT INFORMATION
  Report Type: Report from Study
  Country: CA (occurrence: CA)
  Receive Date: 20160829
  Receipt Date: 20161024
  Transmission Date: 20170207
  Serious: Yes (Other)
  Sender: FDA-Public Use
  Company Number: CA-PFIZER INC-2016399973

PATIENT
  Age: 52 Year
  Sex: Female

DRUGS (3)
  1. ENTYVIO [Suspect]
     Active Substance: VEDOLIZUMAB
     Indication: CROHN^S DISEASE
     Dosage: 300 MG, UNK
     Route: 042
     Dates: start: 20160829
  2. TECTA [Suspect]
     Active Substance: PANTOPRAZOLE MAGNESIUM
     Indication: DYSPEPSIA
     Dosage: UNKNOWN DOSE; TID
  3. IMODIUM [Concomitant]
     Active Substance: LOPERAMIDE HYDROCHLORIDE
     Dosage: QD

REACTIONS (6)
  - Crohn^s disease [Not Recovered/Not Resolved]
  - Feeding disorder [Unknown]
  - Fluid intake reduced [Unknown]
  - Back pain [Unknown]
  - Infusion site extravasation [Unknown]
  - Hypotension [Unknown]

NARRATIVE: CASE EVENT DATE: 20161011
